FAERS Safety Report 7281882-5 (Version None)
Quarter: 2011Q1

REPORT INFORMATION
  Report Type: 
  Country: None (occurrence: None)
  Receive Date: 20110208
  Receipt Date: 20101014
  Transmission Date: 20110831
  Serious: Yes (Other)
  Sender: FDA-Public Use
  Company Number: ES-PFIZER INC-2010106403

PATIENT
  Age: 40 Year
  Sex: Male

DRUGS (2)
  1. CHAMPIX [Suspect]
     Indication: SMOKING CESSATION THERAPY
     Dosage: 0.5 MG, 1X/DAY
     Route: 048
  2. CHAMPIX [Suspect]
     Dosage: 2 TABLETS OF 0.5 MG
     Route: 048

REACTIONS (3)
  - BLISTER [None]
  - SKIN REACTION [None]
  - BURNING SENSATION [None]
